FAERS Safety Report 10518235 (Version 4)
Quarter: 2015Q1

REPORT INFORMATION
  Report Type: Report from Study
  Country: JP (occurrence: JP)
  Receive Date: 20141015
  Receipt Date: 20150105
  Transmission Date: 20150720
  Serious: Yes (Hospitalization)
  Sender: FDA-Public Use
  Company Number: JP-PFIZER INC-2012047467

PATIENT
  Age: 76 Year
  Sex: Male
  Weight: 67 kg

DRUGS (9)
  1. POLARAMINE [Concomitant]
     Active Substance: DEXCHLORPHENIRAMINE MALEATE
     Dosage: 2 MG, WEEKLY
     Route: 048
     Dates: start: 20111228, end: 20111228
  2. POLARAMINE [Concomitant]
     Active Substance: DEXCHLORPHENIRAMINE MALEATE
     Dosage: 2 MG, WEEKLY
     Route: 048
     Dates: start: 20111221, end: 20111221
  3. TEMSIROLIMUS [Suspect]
     Active Substance: TEMSIROLIMUS
     Dosage: 25 MG, WEEKLY
     Route: 041
     Dates: start: 20111221, end: 20111221
  4. TEMSIROLIMUS [Suspect]
     Active Substance: TEMSIROLIMUS
     Dosage: 25 MG, WEEKLY
     Route: 041
     Dates: start: 20120105, end: 20120105
  5. TEMSIROLIMUS [Suspect]
     Active Substance: TEMSIROLIMUS
     Dosage: 25 MG, WEEKLY
     Route: 041
     Dates: start: 20120112, end: 20120126
  6. TEMSIROLIMUS [Suspect]
     Active Substance: TEMSIROLIMUS
     Indication: RENAL CELL CARCINOMA
     Dosage: 25 MG, WEEKLY
     Route: 041
     Dates: start: 20111214, end: 20111214
  7. POLARAMINE [Concomitant]
     Active Substance: DEXCHLORPHENIRAMINE MALEATE
     Dosage: 2 MG, WEEKLY
     Route: 048
     Dates: start: 20120105, end: 20120105
  8. POLARAMINE [Concomitant]
     Active Substance: DEXCHLORPHENIRAMINE MALEATE
     Dosage: 2 MG, WEEKLY
     Route: 048
     Dates: start: 20111214, end: 20111214
  9. TEMSIROLIMUS [Suspect]
     Active Substance: TEMSIROLIMUS
     Dosage: 25 MG, WEEKLY
     Route: 041
     Dates: start: 20111228, end: 20111228

REACTIONS (3)
  - Pneumonia bacterial [Recovering/Resolving]
  - Interstitial lung disease [Recovering/Resolving]
  - Cardiac failure [Recovered/Resolved]

NARRATIVE: CASE EVENT DATE: 20120217
